FAERS Safety Report 24385878 (Version 1)
Quarter: 2024Q4

REPORT INFORMATION
  Report Type: Spontaneous
  Country: US (occurrence: US)
  Receive Date: 20241001
  Receipt Date: 20241001
  Transmission Date: 20250115
  Serious: No
  Sender: SANDOZ
  Company Number: US-SANDOZ-SDZ2024US083782

PATIENT
  Sex: Male

DRUGS (1)
  1. ALBUTEROL SULFATE [Suspect]
     Active Substance: ALBUTEROL SULFATE
     Indication: Dyspnoea
     Dosage: 1-2 PUFF EVERY 4-6 HOURS, MAXIMUM 12 PUFFS
     Route: 055
     Dates: start: 2022

REACTIONS (3)
  - Circumstance or information capable of leading to device use error [Unknown]
  - Device breakage [Unknown]
  - Device mechanical issue [Unknown]
